FAERS Safety Report 5339327-8 (Version None)
Quarter: 2007Q2

REPORT INFORMATION
  Report Type: 
  Country: None (occurrence: None)
  Receive Date: 20070322
  Receipt Date: 20061103
  Transmission Date: 20071010
  Serious: Yes (Hospitalization)
  Sender: FDA-Public Use
  Company Number: 200614550BCC

PATIENT
  Age: 57 Year
  Sex: Male
  Weight: 65.7716 kg

DRUGS (5)
  1. ALEVE [Suspect]
     Indication: ARTHRALGIA
     Dosage: ORAL, 440 MG, HS, ORAL
     Route: 048
     Dates: start: 20060101
  2. ALEVE [Suspect]
     Indication: ARTHRALGIA
     Dosage: ORAL, 440 MG, HS, ORAL
     Route: 048
     Dates: start: 20060919
  3. INSULIN [Concomitant]
  4. GABAPENTIN [Concomitant]
  5. GLIPIZIDE [Concomitant]

REACTIONS (6)
  - ASTHENIA [None]
  - DIARRHOEA [None]
  - DIARRHOEA HAEMORRHAGIC [None]
  - GASTROINTESTINAL HAEMORRHAGE [None]
  - HAEMATEMESIS [None]
  - HAEMORRHAGE [None]
